FAERS Safety Report 14347218 (Version 1)
Quarter: 2018Q1

REPORT INFORMATION
  Report Type: Spontaneous
  Country: US (occurrence: US)
  Receive Date: 20180103
  Receipt Date: 20180103
  Transmission Date: 20180509
  Serious: No
  Sender: FDA-Public Use
  Company Number: US-BAYER-2018-001205

PATIENT
  Sex: Female

DRUGS (1)
  1. ALEVE [Suspect]
     Active Substance: NAPROXEN SODIUM
     Indication: PAIN
     Dosage: UNK, PRN, 1 OR 2 IN THE MORNING AND MAYBE 1 IN THE EVENING.
     Route: 048

REACTIONS (1)
  - Abdominal pain upper [Not Recovered/Not Resolved]
